FAERS Safety Report 7337373-6 (Version None)
Quarter: 2011Q1

REPORT INFORMATION
  Report Type: 
  Country: None (occurrence: None)
  Receive Date: 20110222
  Receipt Date: 20110124
  Transmission Date: 20110831
  Serious: Yes (Hospitalization)
  Sender: FDA-Public Use
  Company Number: 2011MA001393

PATIENT
  Age: 66 Year
  Sex: Female

DRUGS (7)
  1. FERROUS SULFATE TAB [Concomitant]
  2. GABAPENTIN [Suspect]
     Indication: PRODUCT USED FOR UNKNOWN INDICATION
     Dosage: 40 MG; QD; PO
     Route: 048
     Dates: start: 20100109
  3. SUCRALFATE [Concomitant]
  4. OXAZEPAM [Suspect]
     Indication: PRODUCT USED FOR UNKNOWN INDICATION
     Dosage: 25 MG; QD
     Dates: start: 20100321
  5. DEXOFEN (NO PREF. NAME) [Suspect]
     Indication: PRODUCT USED FOR UNKNOWN INDICATION
     Dosage: 250 MG; QD; PO
     Route: 048
     Dates: start: 20100403
  6. ACETAMINOPHEN [Concomitant]
  7. ESOMEPRAZOLE [Concomitant]

REACTIONS (2)
  - LOSS OF CONSCIOUSNESS [None]
  - CONVULSION [None]
